FAERS Safety Report 4608425-6 (Version None)
Quarter: 2005Q1

REPORT INFORMATION
  Report Type: 
  Country: None (occurrence: None)
  Receive Date: 20050311
  Receipt Date: 20050311
  Transmission Date: 20050727
  Serious: Yes (Death)
  Sender: FDA-Public Use
  Company Number: None

PATIENT
  Age: 49 Year
  Sex: Female
  Weight: 77.1115 kg

DRUGS (21)
  1. PREMARIN [Suspect]
     Indication: HOT FLUSH
     Dosage: UNKNOWN DAILY  PO
     Route: 048
     Dates: start: 19990901, end: 20000310
  2. ALPRAZOLAM [Concomitant]
  3. BECLOMETHASONE [Concomitant]
  4. CALCIUM CARBONATE [Concomitant]
  5. CASANTHRANOL W/ DOCUSATE [Concomitant]
  6. CETIRIZINE HCL [Concomitant]
  7. CLONAZEPAM [Concomitant]
  8. DIVALPROEX SODIUM [Concomitant]
  9. ERYTHROMYCIN ^ESTEDI^ [Concomitant]
  10. ETODOLAC [Concomitant]
  11. FAMOTIDINE [Concomitant]
  12. FUROSEMIDE ^NM PHARMA^ [Concomitant]
  13. GUAIFENESIN [Concomitant]
  14. ACETAMINOPHEN AND HYDROCODONE BITARTRATE [Concomitant]
  15. LEVOTHYROXINE [Concomitant]
  16. PAROXETINE HYDROCHLORIDE [Concomitant]
  17. PREDNISONE ^ALONGA^ [Concomitant]
  18. RALOXIFENE HCL [Concomitant]
  19. SALMETEROL XINAFOATE [Concomitant]
  20. THEOPHYLLINE [Concomitant]
  21. VERAPAMIL [Concomitant]

REACTIONS (2)
  - CARDIAC ARREST [None]
  - PULMONARY EMBOLISM [None]
